FAERS Safety Report 9540556 (Version 1)
Quarter: 2013Q3

REPORT INFORMATION
  Report Type: Spontaneous
  Country: US (occurrence: US)
  Receive Date: 20130920
  Receipt Date: 20130920
  Transmission Date: 20140515
  Serious: No
  Sender: FDA-Public Use
  Company Number: US-PFIZER INC-2013269786

PATIENT
  Sex: Male
  Weight: 70.3 kg

DRUGS (2)
  1. CHANTIX [Suspect]
     Indication: SMOKING CESSATION THERAPY
     Dosage: 0.5 MG DAILY
  2. CHANTIX [Suspect]
     Dosage: UNK

REACTIONS (3)
  - Abnormal dreams [Recovered/Resolved]
  - Hostility [Recovered/Resolved]
  - Nausea [Recovered/Resolved]
